FAERS Safety Report 15448954 (Version 1)
Quarter: 2018Q3

REPORT INFORMATION
  Report Type: Spontaneous
  Country: US (occurrence: US)
  Receive Date: 20180926
  Receipt Date: 20180926
  Transmission Date: 20181010
  Serious: Yes (Hospitalization, Other)
  Sender: FDA-Public Use
  Company Number: None

PATIENT
  Age: 58 Year
  Sex: Female

DRUGS (4)
  1. ALPRAZOLAM TAB 1 MG [Concomitant]
     Dates: start: 20180301
  2. DOXYCYCLINE CAP 40 MG [Concomitant]
     Dates: start: 20180920
  3. AMPHETAMINE/DEXTRAMPHETAMINE 30 MG [Concomitant]
     Dates: start: 20170912
  4. NORDITROPIN [Suspect]
     Active Substance: SOMATROPIN
     Indication: HYPOPITUITARISM
     Route: 058
     Dates: start: 20180318

REACTIONS (2)
  - Fall [None]
  - Pelvic fracture [None]

NARRATIVE: CASE EVENT DATE: 20180924
